FAERS Safety Report 7328065-8 (Version None)
Quarter: 2011Q1

REPORT INFORMATION
  Report Type: 
  Country: None (occurrence: None)
  Receive Date: 20110224
  Receipt Date: 20110224
  Transmission Date: 20110831
  Serious: Yes (Other)
  Sender: FDA-Public Use
  Company Number: None

PATIENT
  Age: 34 Year
  Sex: Female

DRUGS (2)
  1. VENLAFAXINE [Suspect]
     Indication: OBSESSIVE-COMPULSIVE DISORDER
     Dosage: 112.5 MG PO 7 AM
     Route: 048
     Dates: start: 20100701
  2. VENLAFAXINE [Suspect]
     Indication: ANXIETY
     Dosage: 112.5 MG PO 7 AM
     Route: 048
     Dates: start: 20100701

REACTIONS (3)
  - SEDATION [None]
  - PRODUCT SUBSTITUTION ISSUE [None]
  - ANXIETY [None]
